FAERS Safety Report 7619627-9 (Version None)
Quarter: 2011Q3

REPORT INFORMATION
  Report Type: 
  Country: None (occurrence: None)
  Receive Date: 20110719
  Receipt Date: 20091119
  Transmission Date: 20111222
  Serious: Yes (Other)
  Sender: FDA-Public Use
  Company Number: US-BAYER-200939959NA

PATIENT
  Age: 63 Year
  Sex: Male
  Weight: 113 kg

DRUGS (11)
  1. TRASYLOL [Suspect]
     Indication: CORONARY ARTERY BYPASS
     Dosage: 1 ML, ONCE, INITIAL TEST DOSE
     Route: 042
     Dates: start: 20030808, end: 20030808
  2. ISOVUE-128 [Concomitant]
     Indication: CATHETERISATION CARDIAC
     Dosage: 105 ML, UNK
     Dates: start: 20030807
  3. PHENOBARBITAL TAB [Concomitant]
     Dosage: 60 MG, BID LONG TERM
     Route: 048
  4. ALBUMIN (HUMAN) [Concomitant]
     Dosage: 25G WITH 100 TO PRIME
     Dates: end: 20030808
  5. LIPITOR [Concomitant]
     Dosage: 10 MG, QD LONG TERM
     Route: 048
  6. ANCEF [Concomitant]
     Dosage: 1 G, UNK
     Route: 042
     Dates: start: 20030808, end: 20030808
  7. TRIAMTERENE AND HYDROCHLOROTHIAZIDE [Concomitant]
     Dosage: 70/50MG DAILY LONG TERM
     Route: 048
  8. TRASYLOL [Suspect]
     Dosage: 100 CC
     Route: 042
     Dates: start: 20030808, end: 20030808
  9. HEPARIN [Concomitant]
     Dosage: 35000/25000 UNITS
     Route: 042
     Dates: start: 20030808
  10. PROTAMINE SULFATE [Concomitant]
     Dosage: 550 MG, UNK
     Route: 042
     Dates: start: 20030808, end: 20030808
  11. PRINIVIL [Concomitant]
     Dosage: 10 MG, QD LONG TERM
     Route: 048

REACTIONS (8)
  - UNEVALUABLE EVENT [None]
  - RENAL FAILURE [None]
  - PAIN [None]
  - ANXIETY [None]
  - DEPRESSION [None]
  - ANHEDONIA [None]
  - INJURY [None]
  - FEAR [None]
